FAERS Safety Report 5844133-1 (Version None)
Quarter: 2008Q3

REPORT INFORMATION
  Report Type: 
  Country: None (occurrence: None)
  Receive Date: 20080808
  Receipt Date: 20061003
  Transmission Date: 20090109
  Serious: Yes (Other)
  Sender: FDA-Public Use
  Company Number: 2006-00859FE

PATIENT
  Age: 8 Year
  Sex: Male

DRUGS (1)
  1. ZOMACTON(ZOMACTON) (SOMATROPIN) [Suspect]
     Dosage: 0.8 MG
     Route: 058
     Dates: start: 20000801, end: 20041101

REACTIONS (3)
  - CONTUSION [None]
  - INJECTION SITE ATROPHY [None]
  - PAIN [None]
